FAERS Safety Report 5892298-8 (Version None)
Quarter: 2008Q3

REPORT INFORMATION
  Report Type: 
  Country: None (occurrence: None)
  Receive Date: 20080919
  Receipt Date: 20080903
  Transmission Date: 20090109
  Serious: Yes (Congenital Anomaly)
  Sender: FDA-Public Use
  Company Number: 8022082

PATIENT
  Sex: Male
  Weight: 2.542 kg

DRUGS (9)
  1. KEPPRA [Suspect]
     Indication: EPILEPSY
     Dosage: 3000 MG/D TRP
     Route: 064
     Dates: start: 20051001, end: 20060722
  2. AMBIEN [Concomitant]
  3. KENALOG [Concomitant]
  4. VITAMIN TAB [Concomitant]
  5. PHENERGAN HCL [Concomitant]
  6. ALBUTEROL [Concomitant]
  7. METOCLOPRAMIDE [Concomitant]
  8. PROZAC [Concomitant]
  9. FERROUS SULFATE [Concomitant]

REACTIONS (7)
  - BODY HEIGHT BELOW NORMAL [None]
  - DACRYOSTENOSIS CONGENITAL [None]
  - DENTAL CARIES [None]
  - FAILURE TO THRIVE [None]
  - GROWTH RETARDATION [None]
  - MATERNAL DRUGS AFFECTING FOETUS [None]
  - WEIGHT GAIN POOR [None]
